FAERS Safety Report 6329387-X (Version None)
Quarter: 2009Q3

REPORT INFORMATION
  Report Type: 
  Country: None (occurrence: None)
  Receive Date: 20090826
  Receipt Date: 20090818
  Transmission Date: 20100115
  Serious: Yes (Other)
  Sender: FDA-Public Use
  Company Number: A0730961A

PATIENT
  Age: 60 Year
  Sex: Male
  Weight: 171.8 kg

DRUGS (2)
  1. AVANDIA [Suspect]
     Dosage: 8MG PER DAY
     Route: 048
     Dates: start: 20030330, end: 20050101
  2. GLUCOTROL [Concomitant]
     Dates: start: 20030101, end: 20050101

REACTIONS (3)
  - INJURY [None]
  - MYOCARDIAL INFARCTION [None]
  - PERICARDIAL EFFUSION [None]
